FAERS Safety Report 17548528 (Version 2)
Quarter: 2020Q1

REPORT INFORMATION
  Report Type: Spontaneous
  Country: US (occurrence: US)
  Receive Date: 20200317
  Receipt Date: 20200320
  Transmission Date: 20200409
  Serious: Yes (Other)
  Sender: FDA-Public Use
  Company Number: US-ASTRAZENECA-2020SE38005

PATIENT
  Age: 23952 Day
  Sex: Female

DRUGS (1)
  1. BYDUREON BCISE [Suspect]
     Active Substance: EXENATIDE
     Indication: TYPE 2 DIABETES MELLITUS
     Route: 058

REACTIONS (7)
  - Incorrect dose administered by device [Unknown]
  - Stress fracture [Unknown]
  - Product dose omission [Unknown]
  - Blood cholesterol increased [Unknown]
  - Disorientation [Unknown]
  - Device leakage [Unknown]
  - Hypertension [Unknown]

NARRATIVE: CASE EVENT DATE: 20190305
